FAERS Safety Report 9351026 (Version 1)
Quarter: 2013Q2

REPORT INFORMATION
  Report Type: Spontaneous
  Country: FR (occurrence: FR)
  Receive Date: 20130617
  Receipt Date: 20130617
  Transmission Date: 20140414
  Serious: Yes (Hospitalization)
  Sender: FDA-Public Use
  Company Number: FR-BRISTOL-MYERS SQUIBB COMPANY-18998526

PATIENT
  Age: 51 Year
  Sex: Male

DRUGS (12)
  1. MANTADIX [Suspect]
     Indication: PARKINSON^S DISEASE
     Route: 048
  2. SINEMET LP [Suspect]
     Indication: PARKINSON^S DISEASE
     Dosage: 1DF: 200 MG / 50 MG ?1 TABLET AT 10.00 P.M
     Route: 048
  3. NEUPRO [Suspect]
     Indication: PARKINSON^S DISEASE
     Dosage: 4MG/24HR 6MG/24HR, 8MG/24HR, SINCE 25-MAR-2013.
     Route: 062
     Dates: start: 20130304, end: 20130510
  4. STALEVO [Suspect]
     Indication: PARKINSON^S DISEASE
     Dosage: 1DF: 150 / 37.5 / 200 MG ?1 TABLET AT 7.00 A.M, 10.00 A.M, 1.00 P.M, 4.00 P.M AND 7.00 P.M
     Route: 048
  5. MODOPAR [Suspect]
     Indication: PARKINSON^S DISEASE
     Dosage: MRNG
     Route: 048
  6. AZILECT [Suspect]
     Indication: PARKINSON^S DISEASE
     Dosage: 1 TAB IN MRNG
     Route: 048
  7. TETRAZEPAM [Concomitant]
  8. DEPAKOTE [Concomitant]
  9. ZOLPIDEM [Concomitant]
     Dosage: IN EVENING
  10. LYSANXIA [Concomitant]
     Dosage: 1 TAB ON MRNG
  11. TAMSULOSIN [Concomitant]
     Dosage: 1 TAB IN MRNG
  12. INEXIUM [Concomitant]

REACTIONS (1)
  - Torticollis [Recovered/Resolved]
